FAERS Safety Report 7411366-2 (Version None)
Quarter: 2011Q2

REPORT INFORMATION
  Report Type: 
  Country: None (occurrence: None)
  Receive Date: 20110413
  Receipt Date: 20100716
  Transmission Date: 20111010
  Serious: Yes (Hospitalization)
  Sender: FDA-Public Use
  Company Number: US-BRISTOL-MYERS SQUIBB COMPANY-15170087

PATIENT
  Age: 63 Year
  Sex: Male

DRUGS (3)
  1. ERBITUX [Suspect]
     Indication: HEAD AND NECK CANCER
     Route: 042
     Dates: start: 20100617
  2. BENADRYL [Concomitant]
     Indication: PREMEDICATION
     Route: 042
  3. PLAVIX [Concomitant]

REACTIONS (3)
  - MUSCLE SPASMS [None]
  - RENAL PAIN [None]
  - HYPERTENSION [None]
